FAERS Safety Report 6541547-1 (Version None)
Quarter: 2010Q1

REPORT INFORMATION
  Report Type: 
  Country: None (occurrence: None)
  Receive Date: 20100119
  Receipt Date: 20100108
  Transmission Date: 20100710
  Serious: Yes (Hospitalization, Other)
  Sender: FDA-Public Use
  Company Number: JP-SANOFI-AVENTIS-2009SA008302

PATIENT
  Age: 76 Year
  Sex: Male
  Weight: 51 kg

DRUGS (4)
  1. PLAVIX [Suspect]
     Indication: STENT PLACEMENT
     Route: 048
     Dates: start: 20091006, end: 20091203
  2. ASPIRIN [Concomitant]
     Indication: STENT PLACEMENT
     Route: 048
     Dates: start: 20091006
  3. FAMOTIDINE [Concomitant]
     Indication: GASTRITIS PROPHYLAXIS
     Route: 048
     Dates: start: 20091006
  4. MICARDIS [Concomitant]
     Indication: CARDIAC FAILURE
     Route: 048
     Dates: start: 20091006

REACTIONS (3)
  - APLASTIC ANAEMIA [None]
  - CARDIAC FAILURE [None]
  - HEPATIC FUNCTION ABNORMAL [None]
